FAERS Safety Report 12675863 (Version 1)
Quarter: 2016Q3

REPORT INFORMATION
  Report Type: Spontaneous
  Country: US (occurrence: US)
  Receive Date: 20160823
  Receipt Date: 20160823
  Transmission Date: 20161109
  Serious: No
  Sender: FDA-Public Use
  Company Number: US-JAZZ-2016-US-006391

PATIENT
  Sex: Female

DRUGS (28)
  1. XYREM [Suspect]
     Active Substance: SODIUM OXYBATE
     Dosage: 3.75 G, BID
     Route: 048
     Dates: start: 201512
  2. BOTOX [Concomitant]
     Active Substance: ONABOTULINUMTOXINA
  3. EFFEXOR [Concomitant]
     Active Substance: VENLAFAXINE HYDROCHLORIDE
  4. MIRENA [Concomitant]
     Active Substance: LEVONORGESTREL
  5. TOPAMAX [Concomitant]
     Active Substance: TOPIRAMATE
  6. DIAMOX SEQUELS [Concomitant]
     Active Substance: ACETAZOLAMIDE
  7. MAXALT [Concomitant]
     Active Substance: RIZATRIPTAN BENZOATE
  8. PROVIGIL [Concomitant]
     Active Substance: MODAFINIL
  9. CYMBALTA [Concomitant]
     Active Substance: DULOXETINE HYDROCHLORIDE
  10. PROAIR HFA [Concomitant]
     Active Substance: ALBUTEROL SULFATE
  11. PROZAC [Concomitant]
     Active Substance: FLUOXETINE HYDROCHLORIDE
  12. XYREM [Suspect]
     Active Substance: SODIUM OXYBATE
     Indication: NARCOLEPSY
     Dosage: 2.25 G, BID
     Route: 048
     Dates: start: 201503, end: 201505
  13. XYREM [Suspect]
     Active Substance: SODIUM OXYBATE
     Indication: CATAPLEXY
     Dosage: DOSE ADJUSTMENT
     Route: 048
  14. LASIX [Concomitant]
     Active Substance: FUROSEMIDE
  15. FORTICAL [Concomitant]
     Active Substance: CALCITONIN SALMON
  16. SELSUN [Concomitant]
     Active Substance: SELENIUM SULFIDE
  17. BUSPIRONE HCL [Concomitant]
     Active Substance: BUSPIRONE HYDROCHLORIDE
  18. PREVACID [Concomitant]
     Active Substance: LANSOPRAZOLE
  19. VERAPAMIL [Concomitant]
     Active Substance: VERAPAMIL HYDROCHLORIDE
  20. PROMETHAZINE [Concomitant]
     Active Substance: PROMETHAZINE\PROMETHAZINE HYDROCHLORIDE
  21. VITAMIN D3 [Concomitant]
     Active Substance: CHOLECALCIFEROL
  22. DICLOFENAC [Concomitant]
     Active Substance: DICLOFENAC
  23. PSEUDOEPHEDRINE [Concomitant]
     Active Substance: PSEUDOEPHEDRINE
  24. FLEXERIL [Concomitant]
     Active Substance: CYCLOBENZAPRINE HYDROCHLORIDE
  25. POTASSIUM GLUCONATE [Concomitant]
     Active Substance: POTASSIUM GLUCONATE
  26. TUSSIONEX PENNKINETIC [Concomitant]
     Active Substance: CHLORPHENIRAMINE\HYDROCODONE
  27. DULOXETINE. [Concomitant]
     Active Substance: DULOXETINE
  28. MODAFINIL. [Concomitant]
     Active Substance: MODAFINIL

REACTIONS (1)
  - Drug ineffective [Unknown]
